FAERS Safety Report 6742149-4 (Version None)
Quarter: 2010Q2

REPORT INFORMATION
  Report Type: 
  Country: None (occurrence: None)
  Receive Date: 20100526
  Receipt Date: 20100521
  Transmission Date: 20101027
  Serious: Yes (Hospitalization)
  Sender: FDA-Public Use
  Company Number: US-ELI_LILLY_AND_COMPANY-US201005006220

PATIENT
  Sex: Female

DRUGS (5)
  1. HUMALOG MIX 75/25 [Suspect]
     Dosage: 30 U, EACH MORNING
  2. HUMALOG MIX 75/25 [Suspect]
     Dosage: 10 U, EACH EVENING
  3. HUMALOG MIX 75/25 [Suspect]
     Dosage: 30 U, EACH MORNING
  4. HUMALOG MIX 75/25 [Suspect]
     Dosage: 10 U, EACH EVENING
  5. NOVOLOG [Concomitant]

REACTIONS (5)
  - BLOOD GLUCOSE INCREASED [None]
  - INFECTION [None]
  - MULTIPLE ALLERGIES [None]
  - PRURITUS [None]
  - SURGERY [None]
